FAERS Safety Report 7715416-5 (Version None)
Quarter: 2011Q3

REPORT INFORMATION
  Report Type: 
  Country: None (occurrence: None)
  Receive Date: 20110829
  Receipt Date: 20110825
  Transmission Date: 20111222
  Serious: Yes (Hospitalization)
  Sender: FDA-Public Use
  Company Number: DE-SANOFI-AVENTIS-2011SA054343

PATIENT
  Age: 70 Year
  Sex: Male
  Weight: 140 kg

DRUGS (1)
  1. MULTAQ [Suspect]
     Indication: ATRIAL FIBRILLATION
     Route: 048
     Dates: start: 20101229, end: 20110203

REACTIONS (2)
  - PANCREATITIS [None]
  - LIPASE INCREASED [None]
